FAERS Safety Report 20879114 (Version 2)
Quarter: 2022Q2

REPORT INFORMATION
  Report Type: Spontaneous
  Country: JP (occurrence: JP)
  Receive Date: 20220526
  Receipt Date: 20220608
  Transmission Date: 20220721
  Serious: Yes (Other)
  Sender: FDA-Public Use
  Company Number: JP-LUPIN PHARMACEUTICALS INC.-2022-07488

PATIENT
  Age: 23 Year
  Sex: Male

DRUGS (2)
  1. SILDENAFIL [Suspect]
     Active Substance: SILDENAFIL
     Indication: Product used for unknown indication
     Dosage: 100 MG, QD (TABLET (OVER 2 MONTHS))
     Route: 048
  2. SILDENAFIL [Suspect]
     Active Substance: SILDENAFIL
     Dosage: 20 DOSAGE FORM, TOTAL 2000MG (OVERDOSE)
     Route: 048

REACTIONS (8)
  - Intentional overdose [Unknown]
  - Suicide attempt [Unknown]
  - Retinal toxicity [Recovering/Resolving]
  - Colour blindness [Recovering/Resolving]
  - Photophobia [Recovering/Resolving]
  - Visual field defect [Recovering/Resolving]
  - Vision blurred [Recovering/Resolving]
  - Loss of visual contrast sensitivity [Recovering/Resolving]
